FAERS Safety Report 15662814 (Version 3)
Quarter: 2019Q3

REPORT INFORMATION
  Report Type: Spontaneous
  Country: US (occurrence: US)
  Receive Date: 20181127
  Receipt Date: 20190806
  Transmission Date: 20191004
  Serious: Yes (Other)
  Sender: FDA-Public Use
  Company Number: US-SA-2018SA174964

PATIENT
  Age: 66 Year
  Sex: Female
  Weight: 108.4 kg

DRUGS (23)
  1. TAXOTERE [Suspect]
     Active Substance: DOCETAXEL
     Dosage: 156 MG, Q3W
     Route: 042
     Dates: start: 20080805, end: 20080805
  2. CYTOXAN [Concomitant]
     Active Substance: CYCLOPHOSPHAMIDE
     Dosage: 1254 UNK
     Dates: start: 20080715
  3. EMEND [Concomitant]
     Active Substance: APREPITANT
     Dosage: 115 UNK
     Route: 065
     Dates: start: 20080715
  4. DECADRON [Concomitant]
     Active Substance: DEXAMETHASONE
     Dosage: 10 MG, UNK
     Route: 065
     Dates: start: 20080715
  5. ALOXI [Concomitant]
     Active Substance: PALONOSETRON HYDROCHLORIDE
     Dosage: 0.25 MG
     Route: 065
     Dates: start: 20080715
  6. CYTOXAN [Concomitant]
     Active Substance: CYCLOPHOSPHAMIDE
     Dosage: 1254 UNK
     Route: 065
     Dates: start: 20080805
  7. ALOXI [Concomitant]
     Active Substance: PALONOSETRON HYDROCHLORIDE
     Dosage: 0.25 MG, UNK
     Route: 065
  8. ATIVAN [Concomitant]
     Active Substance: LORAZEPAM
     Dosage: 1 MG, UNK
     Route: 065
  9. ATIVAN [Concomitant]
     Active Substance: LORAZEPAM
     Dosage: 1 MG
     Dates: start: 20080715
  10. EMEND [Concomitant]
     Active Substance: APREPITANT
     Dosage: 115 UNK
     Route: 065
  11. ALOXI [Concomitant]
     Active Substance: PALONOSETRON HYDROCHLORIDE
     Dosage: 0.25 MG, UNK
     Route: 065
     Dates: start: 20080805
  12. ATIVAN [Concomitant]
     Active Substance: LORAZEPAM
     Dosage: 1 MG, UNK
     Route: 065
  13. EMEND [Concomitant]
     Active Substance: APREPITANT
     Dosage: 115 UNK
     Route: 065
     Dates: start: 20080805
  14. ALOXI [Concomitant]
     Active Substance: PALONOSETRON HYDROCHLORIDE
     Dosage: 0.25 MG
     Route: 065
  15. TAXOTERE [Suspect]
     Active Substance: DOCETAXEL
     Indication: BREAST CANCER FEMALE
     Dosage: 156 MG, Q3W
     Route: 042
     Dates: start: 20080602, end: 20080602
  16. CYTOXAN [Concomitant]
     Active Substance: CYCLOPHOSPHAMIDE
     Dosage: 1254 UNK
     Route: 065
  17. DECADRON [Concomitant]
     Active Substance: DEXAMETHASONE
     Dosage: 10 MG, UNK
     Route: 065
  18. DECADRON [Concomitant]
     Active Substance: DEXAMETHASONE
     Dosage: 10 MG, UNK
     Route: 065
  19. DECADRON [Concomitant]
     Active Substance: DEXAMETHASONE
     Dosage: 10 MG, UNK
     Route: 065
     Dates: start: 20080805
  20. ATIVAN [Concomitant]
     Active Substance: LORAZEPAM
     Dosage: 1 MG, UNK
     Route: 065
     Dates: start: 20080805
  21. CYTOXAN [Concomitant]
     Active Substance: CYCLOPHOSPHAMIDE
     Dosage: 1254 MG
     Route: 065
  22. EMEND [Concomitant]
     Active Substance: APREPITANT
     Dosage: 115 MG
     Route: 065
  23. NEOSAR [Concomitant]
     Active Substance: CYCLOPHOSPHAMIDE
     Indication: BREAST CANCER FEMALE
     Dosage: UNK, UNK
     Route: 065

REACTIONS (1)
  - Alopecia [Recovering/Resolving]

NARRATIVE: CASE EVENT DATE: 20090201
